FAERS Safety Report 6048554-6 (Version None)
Quarter: 2009Q1

REPORT INFORMATION
  Report Type: 
  Country: None (occurrence: None)
  Receive Date: 20090122
  Receipt Date: 20090122
  Transmission Date: 20090719
  Serious: Yes (Life-Threatening, Disabling, Other)
  Sender: FDA-Public Use
  Company Number: None

PATIENT
  Age: 65 Year
  Sex: Male
  Weight: 74.8435 kg

DRUGS (1)
  1. PHOSPHO-SODA, BUFFERED SALINE FLEET [Suspect]
     Indication: SIGMOIDOSCOPY
     Dosage: 1.5 OUNCE WITH 1/2 GLASS WATER 6PM 10/02/1996 PO; 1.5 OUNCE WITH 1/2 GLASS WATER 8 AM 10/03/1996 PO
     Route: 048
     Dates: start: 19961002, end: 19961003

REACTIONS (1)
  - RENAL IMPAIRMENT [None]
